FAERS Safety Report 10610713 (Version 1)
Quarter: 2014Q4

REPORT INFORMATION
  Report Type: Spontaneous
  Country: US (occurrence: US)
  Receive Date: 20141126
  Receipt Date: 20141126
  Transmission Date: 20150529
  Serious: Yes (Other)
  Sender: FDA-Public Use
  Company Number: US-BAYER-2014-172264

PATIENT
  Age: 30 Year
  Sex: Female

DRUGS (2)
  1. MIRENA [Suspect]
     Active Substance: LEVONORGESTREL
     Indication: MENORRHAGIA
     Dosage: 20 MCG/24HR, CONT
     Route: 015
     Dates: start: 201106
  2. MIRENA [Suspect]
     Active Substance: LEVONORGESTREL
     Indication: OVULATION DISORDER

REACTIONS (6)
  - Amenorrhoea [None]
  - Abdominal pain lower [None]
  - Coital bleeding [None]
  - Dyspareunia [None]
  - Genital haemorrhage [None]
  - Vaginal haemorrhage [None]

NARRATIVE: CASE EVENT DATE: 201411
